FAERS Safety Report 23278151 (Version 2)
Quarter: 2024Q1

REPORT INFORMATION
  Report Type: Spontaneous
  Country: US (occurrence: US)
  Receive Date: 20231208
  Receipt Date: 20240311
  Transmission Date: 20240409
  Serious: Yes (Other)
  Sender: FDA-Public Use
  Company Number: US-TEVA-VS-3134466

PATIENT
  Age: 68 Year
  Sex: Female

DRUGS (1)
  1. TRAMADOL [Suspect]
     Active Substance: TRAMADOL\TRAMADOL HYDROCHLORIDE
     Indication: Fibromyalgia
     Dosage: RECEIVED 50 MG EVERY 6 H AS NEEDED FOR OVER 10 YEARS
     Route: 065

REACTIONS (7)
  - Sneezing [Unknown]
  - Chest discomfort [Unknown]
  - Withdrawal syndrome [Recovering/Resolving]
  - Insomnia [Recovering/Resolving]
  - Neck pain [Recovering/Resolving]
  - Secretion discharge [Recovering/Resolving]
  - Cough [Unknown]
